FAERS Safety Report 4538845-X (Version None)
Quarter: 2004Q4

REPORT INFORMATION
  Report Type: 
  Country: None (occurrence: None)
  Receive Date: 20041222
  Receipt Date: 20041216
  Transmission Date: 20050328
  Serious: Yes (Death)
  Sender: FDA-Public Use
  Company Number: US-2004-030770

PATIENT
  Age: 58 Year
  Sex: Female

DRUGS (4)
  1. BETASERON [Suspect]
     Indication: MULTIPLE SCLEROSIS
     Dosage: 8 MIU, EVERY 2D, SUBCUTANEOUS
     Route: 058
     Dates: start: 20000401, end: 20040714
  2. NEURONTIN [Concomitant]
  3. DILANTIN /AUS/ (PHENYTOIN SODIUM) [Concomitant]
  4. PROZAC [Concomitant]

REACTIONS (1)
  - DEATH [None]
